FAERS Safety Report 12573581 (Version 1)
Quarter: 2016Q3

REPORT INFORMATION
  Report Type: Report from Study
  Country: BR (occurrence: BR)
  Receive Date: 20160720
  Receipt Date: 20160720
  Transmission Date: 20161109
  Serious: Yes (Hospitalization, Disabling)
  Sender: FDA-Public Use
  Company Number: PHHY2016BR097758

PATIENT
  Age: 88 Year
  Sex: Female
  Weight: 65 kg

DRUGS (1)
  1. ACLASTA [Suspect]
     Active Substance: ZOLEDRONIC ACID
     Indication: PRODUCT USED FOR UNKNOWN INDICATION
     Dosage: 5 MG, Q12MO
     Route: 042
     Dates: start: 20150617

REACTIONS (6)
  - Pneumonia [Unknown]
  - Balance disorder [Unknown]
  - Mobility decreased [Unknown]
  - Femur fracture [Recovering/Resolving]
  - Fall [Unknown]
  - Nosocomial infection [Not Recovered/Not Resolved]

NARRATIVE: CASE EVENT DATE: 20160507
